FAERS Safety Report 9608476 (Version 1)
Quarter: 2013Q4

REPORT INFORMATION
  Report Type: Spontaneous
  Country: US (occurrence: None)
  Receive Date: 20131007
  Receipt Date: 20131007
  Transmission Date: 20140711
  Serious: Yes (Hospitalization)
  Sender: FDA-Public Use
  Company Number: None

PATIENT
  Age: 25 Year
  Sex: Male
  Weight: 65.5 kg

DRUGS (1)
  1. DEXAMETHASONE [Suspect]
     Dates: end: 20120731

REACTIONS (2)
  - Bone graft [None]
  - Osteonecrosis [None]
